FAERS Safety Report 20337417 (Version 1)
Quarter: 2022Q1

REPORT INFORMATION
  Report Type: Spontaneous
  Country: US (occurrence: US)
  Receive Date: 20220114
  Receipt Date: 20220114
  Transmission Date: 20220424
  Serious: No
  Sender: FDA-Public Use
  Company Number: US-SA-SAC20220106000867

PATIENT
  Age: 65 Year
  Sex: Female

DRUGS (17)
  1. DUPIXENT [Suspect]
     Active Substance: DUPILUMAB
     Indication: Asthma
     Dosage: 300 MG, QOW
     Route: 058
     Dates: start: 20210120
  2. BETHANECHOL [Concomitant]
     Active Substance: BETHANECHOL
  3. BREO ELLIPTA [Concomitant]
     Active Substance: FLUTICASONE FUROATE\VILANTEROL TRIFENATATE
  4. CULTURELLE [Concomitant]
     Active Substance: LACTOBACILLUS RHAMNOSUS
  5. CULTURELLE [Concomitant]
     Active Substance: LACTOBACILLUS RHAMNOSUS
  6. DEXILANT [Concomitant]
     Active Substance: DEXLANSOPRAZOLE
  7. DILTIAZEM [Concomitant]
     Active Substance: DILTIAZEM
  8. PLAVIX [Concomitant]
     Active Substance: CLOPIDOGREL BISULFATE
  9. PLAVIX [Concomitant]
     Active Substance: CLOPIDOGREL BISULFATE
  10. TIZANIDINE [Concomitant]
     Active Substance: TIZANIDINE
  11. VITAMIN D NOS [Concomitant]
     Active Substance: VITAMIN D NOS
  12. ZINC [Concomitant]
     Active Substance: ZINC
  13. CYANOCOBALAMIN [Concomitant]
     Active Substance: CYANOCOBALAMIN
  14. MAGNESIUM [Concomitant]
     Active Substance: MAGNESIUM
  15. BIFIDOBACTERIUM ANIMALIS LACTIS [Concomitant]
     Active Substance: BIFIDOBACTERIUM ANIMALIS LACTIS
  16. PYRIDOSTIGMINE [Concomitant]
     Active Substance: PYRIDOSTIGMINE
  17. PROBIOTICS NOS [Concomitant]
     Active Substance: PROBIOTICS NOS

REACTIONS (3)
  - Pruritus [Recovered/Resolved]
  - Product use issue [Unknown]
  - Product dose omission issue [Unknown]

NARRATIVE: CASE EVENT DATE: 20210120
